FAERS Safety Report 7905363-8 (Version None)
Quarter: 2011Q4

REPORT INFORMATION
  Report Type: 
  Country: None (occurrence: None)
  Receive Date: 20111109
  Receipt Date: 20111031
  Transmission Date: 20120403
  Serious: Yes (Other)
  Sender: FDA-Public Use
  Company Number: US-ASTRAZENECA-2011SE65930

PATIENT
  Age: 80 Year
  Sex: Female

DRUGS (3)
  1. NEXIUM [Suspect]
     Route: 048
  2. OMEPRAZOLE [Suspect]
     Route: 048
  3. NEXIUM [Suspect]
     Indication: GASTRINOMA
     Route: 048

REACTIONS (2)
  - DRUG PRESCRIBING ERROR [None]
  - GASTRINOMA [None]
